FAERS Safety Report 10553574 (Version 1)
Quarter: 2014Q4

REPORT INFORMATION
  Report Type: Spontaneous
  Country: US (occurrence: None)
  Receive Date: 20141023
  Receipt Date: 20141023
  Transmission Date: 20150529
  Serious: No
  Sender: FDA-Public Use
  Company Number: AP356-01086-SPO-US

PATIENT
  Age: 57 Year
  Sex: Female
  Weight: 105.6 kg

DRUGS (2)
  1. VITAMINS (KAPSOVIT) [Concomitant]
     Active Substance: VITAMINS
  2. BELVIQ [Suspect]
     Active Substance: LORCASERIN HYDROCHLORIDE
     Indication: OBESITY
     Route: 048
     Dates: start: 20140711

REACTIONS (2)
  - Constipation [None]
  - Somnolence [None]

NARRATIVE: CASE EVENT DATE: 201407
